FAERS Safety Report 20257392 (Version 2)
Quarter: 2022Q1

REPORT INFORMATION
  Report Type: Spontaneous
  Country: US (occurrence: US)
  Receive Date: 20211230
  Receipt Date: 20220124
  Transmission Date: 20220423
  Serious: Yes (Other)
  Sender: FDA-Public Use
  Company Number: US-TAKEDA-2021TUS082083

PATIENT
  Sex: Female

DRUGS (10)
  1. GAMMAGARD [Suspect]
     Active Substance: HUMAN IMMUNOGLOBULIN G
     Indication: Dermatomyositis
     Dosage: UNK
     Route: 042
  2. GAMMAGARD LIQUID [Suspect]
     Active Substance: HUMAN IMMUNOGLOBULIN G
     Indication: Dermatomyositis
     Dosage: 75 MILLIGRAM, Q 31 DAYS
     Route: 042
     Dates: start: 20210416, end: 20210902
  3. CLOBETASOL [Concomitant]
     Active Substance: CLOBETASOL
  4. FOLIC ACID [Concomitant]
     Active Substance: FOLIC ACID
  5. METHOTREXATE [Concomitant]
     Active Substance: METHOTREXATE
  6. NIFEDIPINE [Concomitant]
     Active Substance: NIFEDIPINE
  7. PREDNISOLONE [Concomitant]
     Active Substance: PREDNISOLONE
     Dosage: 10 MILLIGRAM, BID
     Route: 048
  8. PROLIA [Concomitant]
     Active Substance: DENOSUMAB
  9. RITUXAN [Concomitant]
     Active Substance: RITUXIMAB
     Route: 042
  10. ZOLPIDEM [Concomitant]
     Active Substance: ZOLPIDEM TARTRATE

REACTIONS (1)
  - Hepatitis [Unknown]
